FAERS Safety Report 8453039-3 (Version None)
Quarter: 2012Q2

REPORT INFORMATION
  Report Type: 
  Country: None (occurrence: None)
  Receive Date: 20120620
  Receipt Date: 20120507
  Transmission Date: 20120825
  Serious: No
  Sender: FDA-Public Use
  Company Number: US-VERTEX PHARMACEUTICALS INC.-AE-2012-006526

PATIENT
  Sex: Female

DRUGS (7)
  1. FISH OIL [Concomitant]
     Indication: MEDICAL DIET
     Route: 048
  2. SYNTHROID [Concomitant]
     Indication: HYPOTHYROIDISM
     Route: 048
  3. VIVELLE [Concomitant]
     Indication: MENOPAUSAL SYMPTOMS
  4. RIBAVIRIN [Concomitant]
     Indication: HEPATITIS C
     Route: 048
     Dates: start: 20120425
  5. PEGASYS [Concomitant]
     Indication: HEPATITIS C
     Route: 058
     Dates: start: 20120425
  6. INCIVEK [Suspect]
     Indication: HEPATITIS C
     Route: 048
     Dates: start: 20120425
  7. ASPIRIN [Concomitant]
     Indication: ANTICOAGULANT THERAPY
     Route: 048

REACTIONS (9)
  - CHEST DISCOMFORT [None]
  - DYSPNOEA [None]
  - ANORECTAL DISCOMFORT [None]
  - BLOOD PRESSURE INCREASED [None]
  - RASH GENERALISED [None]
  - BLISTER [None]
  - FATIGUE [None]
  - NAUSEA [None]
  - ANAL PRURITUS [None]
